FAERS Safety Report 5700070-4 (Version None)
Quarter: 2008Q2

REPORT INFORMATION
  Report Type: 
  Country: None (occurrence: None)
  Receive Date: 20080410
  Receipt Date: 20080408
  Transmission Date: 20081010
  Serious: Yes (Hospitalization, Disabling)
  Sender: FDA-Public Use
  Company Number: RS-ROCHE-555833

PATIENT
  Sex: Male

DRUGS (4)
  1. CELLCEPT [Suspect]
     Indication: RENAL TRANSPLANT
     Route: 048
     Dates: start: 20080101
  2. ATGAM [Concomitant]
     Indication: RENAL TRANSPLANT
     Route: 042
  3. PROGRAF [Concomitant]
     Indication: RENAL TRANSPLANT
     Route: 048
  4. 1 UNSPECIFIED DRUG [Concomitant]
     Indication: RENAL TRANSPLANT
     Dosage: DRUG NAME REPORTED: PRONISON
     Route: 048

REACTIONS (4)
  - BRAIN ABSCESS [None]
  - MENINGITIS [None]
  - UROSEPSIS [None]
  - VIITH NERVE PARALYSIS [None]
